FAERS Safety Report 5367479-2 (Version None)
Quarter: 2007Q2

REPORT INFORMATION
  Report Type: 
  Country: None (occurrence: None)
  Receive Date: 20070622
  Receipt Date: 20061115
  Transmission Date: 20071010
  Serious: No
  Sender: FDA-Public Use
  Company Number: US-ASTRAZENECA-2006UW19974

PATIENT
  Age: 67 Year
  Sex: Female
  Weight: 68 kg

DRUGS (1)
  1. PULMICORT [Suspect]
     Indication: DYSPNOEA
     Dosage: TWO PUFFS DAILY
     Route: 055

REACTIONS (1)
  - BLOOD GLUCOSE INCREASED [None]
